FAERS Safety Report 6343212-2 (Version None)
Quarter: 2009Q3

REPORT INFORMATION
  Report Type: 
  Country: None (occurrence: None)
  Receive Date: 20090908
  Receipt Date: 20090903
  Transmission Date: 20100115
  Serious: Yes (Hospitalization)
  Sender: FDA-Public Use
  Company Number: FR-PFIZER INC-2009257222

PATIENT
  Age: 71 Year

DRUGS (3)
  1. CAMPTOSAR [Suspect]
     Dosage: 2 DAYS EVERY 15-DAY CYCLE
     Route: 042
     Dates: start: 20090316
  2. FLUOROURACIL [Suspect]
     Dosage: 2 DAYS EVERY 15-DAY CYCLE
     Route: 042
     Dates: start: 20090316
  3. AVASTIN [Suspect]
     Dosage: 25 MG/ML 2 DAYS EVERY 15-DAY CYCLE
     Route: 042
     Dates: start: 20090316, end: 20090525

REACTIONS (1)
  - OSTEONECROSIS [None]
